FAERS Safety Report 19031925 (Version 1)
Quarter: 2021Q1

REPORT INFORMATION
  Report Type: Spontaneous
  Country: US (occurrence: US)
  Receive Date: 20210319
  Receipt Date: 20210319
  Transmission Date: 20210420
  Serious: No
  Sender: FDA-Public Use
  Company Number: US-SA-2021SA091702

PATIENT
  Age: 33 Year
  Sex: Female

DRUGS (11)
  1. ZOLPIDEM [Concomitant]
     Active Substance: ZOLPIDEM TARTRATE
  2. ARIPIPRAZOLE. [Concomitant]
     Active Substance: ARIPIPRAZOLE
  3. QUETIAPINE. [Concomitant]
     Active Substance: QUETIAPINE
  4. SOOLANTRA [Concomitant]
     Active Substance: IVERMECTIN
  5. TOPIRAMATE. [Concomitant]
     Active Substance: TOPIRAMATE
  6. DUPIXENT [Suspect]
     Active Substance: DUPILUMAB
     Indication: DERMATITIS ATOPIC
     Dosage: 300 MG, QOW
     Route: 058
     Dates: start: 20201114
  7. DIETHYLPROPION [AMFEPRAMONE] [Concomitant]
  8. LAMOTRIGINE. [Concomitant]
     Active Substance: LAMOTRIGINE
  9. ALPRAZOLAM. [Concomitant]
     Active Substance: ALPRAZOLAM
  10. FLUOXETINE [Concomitant]
     Active Substance: FLUOXETINE HYDROCHLORIDE
  11. BUPROPION HCL [Concomitant]
     Active Substance: BUPROPION HYDROCHLORIDE

REACTIONS (2)
  - Dermatitis atopic [Unknown]
  - Product dose omission issue [Unknown]

NARRATIVE: CASE EVENT DATE: 2021
